FAERS Safety Report 4570546-4 (Version None)
Quarter: 2005Q1

REPORT INFORMATION
  Report Type: 
  Country: None (occurrence: None)
  Receive Date: 20050203
  Receipt Date: 20050203
  Transmission Date: 20050727
  Serious: Yes (Hospitalization)
  Sender: FDA-Public Use
  Company Number: None

PATIENT
  Sex: Male
  Weight: 74 kg

DRUGS (7)
  1. GEFITINIB 250MG TABS, ASTRAZENECA [Suspect]
     Indication: GLIOMA
     Dosage: 500 MG PO, QD
     Route: 048
     Dates: start: 20041112, end: 20041210
  2. RAPAMUNE [Suspect]
     Indication: GLIOMA
     Dosage: 10 MG PO, QD
     Route: 048
     Dates: start: 20041112, end: 20041210
  3. KEPPRA [Concomitant]
  4. ZOLOFT [Concomitant]
  5. DECADRON [Concomitant]
  6. LISINOPRIL [Concomitant]
  7. PROTONIX [Concomitant]

REACTIONS (4)
  - BLOOD PRESSURE DECREASED [None]
  - LOSS OF CONSCIOUSNESS [None]
  - SYNCOPE [None]
  - THROMBOCYTOPENIA [None]
